FAERS Safety Report 9223265 (Version 2)
Quarter: 2013Q2

REPORT INFORMATION
  Report Type: Spontaneous
  Country: US (occurrence: US)
  Receive Date: 20130410
  Receipt Date: 20130524
  Transmission Date: 20140414
  Serious: No
  Sender: FDA-Public Use
  Company Number: US-PFIZER INC-2012043011

PATIENT
  Age: 56 Year
  Sex: Male

DRUGS (15)
  1. NORVASC [Suspect]
     Indication: OEDEMA
     Dosage: 10 MG, 2X/DAY
     Route: 048
  2. NORVASC [Suspect]
     Dosage: 10 MG, DAILY
     Route: 048
     Dates: start: 20120109
  3. CELEBREX [Concomitant]
     Dosage: 200 MG, 1X/DAY
  4. NEURONTIN [Concomitant]
     Dosage: 800 MG, 4X/DAY
  5. ABILIFY [Concomitant]
     Dosage: 2 MG, 1 TABLET BEFORE BED, 1X/DAY
  6. CYMBALTA [Concomitant]
     Dosage: 60 MG, 2X/DAY
  7. HYDROCHLOROTHIAZIDE [Concomitant]
     Dosage: 25 MG, 1X/DAY
  8. LISINOPRIL [Concomitant]
     Dosage: 40 MG, 1X/DAY
  9. NAPROXEN SODIUM [Concomitant]
     Dosage: 500 MG, 1X/DAY
  10. TOPROL XL [Concomitant]
     Dosage: 100 MG, 2X/DAY
  11. TRAZODONE [Concomitant]
     Dosage: 150 MG, 1 TABLET BEFORE BED, 1X/DAY
  12. COMBIVENT [Concomitant]
     Dosage: 103-103 4XDAY/PRN
  13. WELLBUTRIN [Concomitant]
     Dosage: UNK
  14. ADVAIR [Concomitant]
     Dosage: UNK
  15. TOPAMAX [Concomitant]
     Dosage: UNK

REACTIONS (2)
  - Oedema [Recovering/Resolving]
  - Off label use [Unknown]
